FAERS Safety Report 7757080-5 (Version None)
Quarter: 2011Q3

REPORT INFORMATION
  Report Type: 
  Country: None (occurrence: None)
  Receive Date: 20110916
  Receipt Date: 20110907
  Transmission Date: 20111222
  Serious: Yes (Other)
  Sender: FDA-Public Use
  Company Number: US-UCBSA-8041723

PATIENT
  Age: 16 Year
  Sex: Female

DRUGS (3)
  1. PRENATAL VITAMINS [Concomitant]
     Indication: PREGNANCY
     Dosage: DOSE FREQ.: DAILY
     Dates: start: 20080205
  2. KEPPRA [Suspect]
     Indication: EPILEPSY
     Dosage: DOSE FREQ.: DAILY
     Route: 048
  3. NIFEDIPINE [Concomitant]
     Indication: PROPHYLAXIS
     Dates: start: 20080716

REACTIONS (2)
  - PREMATURE LABOUR [None]
  - MATERNAL EXPOSURE DURING PREGNANCY [None]
